FAERS Safety Report 21838212 (Version 2)
Quarter: 2023Q1

REPORT INFORMATION
  Report Type: Spontaneous
  Country: US (occurrence: US)
  Receive Date: 20230109
  Receipt Date: 20230123
  Transmission Date: 20230417
  Serious: Yes (Death, Other)
  Sender: FDA-Public Use
  Company Number: US-002147023-NVSC2023US003766

PATIENT
  Age: 76 Year
  Sex: Female

DRUGS (1)
  1. RECLAST [Suspect]
     Active Substance: ZOLEDRONIC ACID
     Indication: Osteoporosis
     Dosage: UNK
     Route: 065

REACTIONS (11)
  - Death [Fatal]
  - Sepsis [Unknown]
  - Uterine infection [Unknown]
  - Gastrointestinal necrosis [Unknown]
  - Renal failure [Unknown]
  - Loss of consciousness [Unknown]
  - Fatigue [Unknown]
  - Nausea [Unknown]
  - Headache [Unknown]
  - Migraine [Unknown]
  - Influenza like illness [Unknown]

NARRATIVE: CASE EVENT DATE: 20221209
